FAERS Safety Report 4424126-1 (Version None)
Quarter: 2004Q3

REPORT INFORMATION
  Report Type: 
  Country: None (occurrence: None)
  Receive Date: 20040809
  Receipt Date: 20040727
  Transmission Date: 20050211
  Serious: Yes (Hospitalization)
  Sender: FDA-Public Use
  Company Number: 2004050902

PATIENT
  Age: 18 Year
  Sex: Female

DRUGS (1)
  1. ZITHROMAX [Suspect]
     Indication: TONSILLITIS
     Dosage: 500 MG (500 MG, 1 IN 1 D), ORAL
     Route: 048
     Dates: start: 20010801, end: 20010101

REACTIONS (4)
  - LOCALISED EXFOLIATION [None]
  - PERIORBITAL OEDEMA [None]
  - PRURITUS [None]
  - SKIN LESION [None]
